FAERS Safety Report 18615962 (Version 1)
Quarter: 2020Q4

REPORT INFORMATION
  Report Type: Spontaneous
  Country: US (occurrence: US)
  Receive Date: 20201214
  Receipt Date: 20201214
  Transmission Date: 20210114
  Serious: No
  Sender: FDA-Public Use
  Company Number: US-SUN PHARMACEUTICAL INDUSTRIES LTD-2020R1-262422

PATIENT
  Age: 82 Year
  Sex: Female

DRUGS (1)
  1. DILTIAZEM. [Suspect]
     Active Substance: DILTIAZEM
     Indication: PRODUCT USED FOR UNKNOWN INDICATION
     Dosage: 240 MILLIGRAM, UNK
     Route: 065
     Dates: start: 202006

REACTIONS (3)
  - Eye irritation [Unknown]
  - Vision blurred [Unknown]
  - Pruritus [Unknown]

NARRATIVE: CASE EVENT DATE: 202006
